FAERS Safety Report 9315564 (Version 2)
Quarter: 2013Q2

REPORT INFORMATION
  Report Type: Spontaneous
  Country: US (occurrence: US)
  Receive Date: 20130529
  Receipt Date: 20130625
  Transmission Date: 20140414
  Serious: Yes (Death, Hospitalization, Other)
  Sender: FDA-Public Use
  Company Number: US-PURDUE-USA-2013-0102750

PATIENT
  Age: 55 Year
  Sex: Male

DRUGS (4)
  1. MS CONTIN TABLETS [Suspect]
     Indication: PRODUCT USED FOR UNKNOWN INDICATION
     Dosage: 90 MG, BID
     Route: 048
  2. MS IR [Suspect]
     Indication: BREAKTHROUGH PAIN
     Dosage: 15 MG, PRN
     Route: 048
  3. SUTENT [Suspect]
     Indication: PRODUCT USED FOR UNKNOWN INDICATION
     Dosage: 50 MG, DAILY
     Dates: start: 20130207
  4. TAMSULOSIN [Concomitant]
     Indication: PRODUCT USED FOR UNKNOWN INDICATION
     Dosage: 0.4 MG, MG  12 TABS DAILY

REACTIONS (4)
  - Death [Fatal]
  - Pneumonia [Unknown]
  - Dyspnoea [Unknown]
  - Constipation [Recovered/Resolved]
